FAERS Safety Report 8665073 (Version 4)
Quarter: 2013Q1

REPORT INFORMATION
  Report Type: Report from Study
  Country: DE (occurrence: BE)
  Receive Date: 20120716
  Receipt Date: 20130329
  Transmission Date: 20140127
  Serious: Yes (Hospitalization)
  Sender: FDA-Public Use
  Company Number: DE-BIOGENIDEC-2012BI025031

PATIENT
  Age: 29 Year
  Sex: Male

DRUGS (2)
  1. TYSABRI [Suspect]
     Indication: RELAPSING-REMITTING MULTIPLE SCLEROSIS
     Route: 042
     Dates: start: 20091001
  2. VITAMIN D [Concomitant]
     Dates: start: 20091001

REACTIONS (3)
  - Parathyroid tumour benign [Recovered/Resolved]
  - Hypercalcaemia [Recovered/Resolved]
  - Parathyroidectomy [Recovered/Resolved]
